FAERS Safety Report 4898060-7 (Version None)
Quarter: 2006Q1

REPORT INFORMATION
  Report Type: 
  Country: None (occurrence: None)
  Receive Date: 20060130
  Receipt Date: 20060123
  Transmission Date: 20060701
  Serious: Yes (Other)
  Sender: FDA-Public Use
  Company Number: 200512510BWH

PATIENT
  Age: 52 Year
  Sex: Female

DRUGS (3)
  1. TRASYLOL [Suspect]
     Indication: CORONARY ARTERY SURGERY
     Dosage: 1+ 200ML, ONCE, INTRAVENOUS
     Route: 042
     Dates: start: 20051102
  2. TRASYLOL [Suspect]
     Indication: MITRAL VALVE REPAIR
     Dosage: 1+ 200ML, ONCE, INTRAVENOUS
     Route: 042
     Dates: start: 20051102
  3. AMICAR [Concomitant]

REACTIONS (4)
  - BACTERIAL INFECTION [None]
  - BRONCHOSPASM [None]
  - LUNG DISORDER [None]
  - PULMONARY OEDEMA [None]
